FAERS Safety Report 26081701 (Version 3)
Quarter: 2025Q4

REPORT INFORMATION
  Report Type: Spontaneous
  Country: US (occurrence: US)
  Receive Date: 20251124
  Receipt Date: 20251231
  Transmission Date: 20260118
  Serious: Yes (Other)
  Sender: CSL BEHRING
  Company Number: US-CSL-11858

PATIENT
  Age: 69 Year
  Sex: Female

DRUGS (3)
  1. ANDEMBRY [Suspect]
     Active Substance: GARADACIMAB-GXII
     Indication: Hereditary angioedema
     Dosage: 400 MG
     Route: 058
  2. ANDEMBRY [Suspect]
     Active Substance: GARADACIMAB-GXII
     Indication: Prophylaxis
     Dosage: 400 MG, QD (LOADING DOSE ONCE)
     Route: 058
     Dates: start: 20251113, end: 20251113
  3. ANDEMBRY [Suspect]
     Active Substance: GARADACIMAB-GXII
     Indication: Prophylaxis
     Dosage: 200 MG, QMT
     Route: 058
     Dates: start: 20251113

REACTIONS (1)
  - Drug ineffective [Unknown]

NARRATIVE: CASE EVENT DATE: 20251101
